FAERS Safety Report 9335752 (Version 1)
Quarter: 2013Q2

REPORT INFORMATION
  Report Type: Spontaneous
  Country: US (occurrence: US)
  Receive Date: 20130606
  Receipt Date: 20130606
  Transmission Date: 20140414
  Serious: No
  Sender: FDA-Public Use
  Company Number: US-AMGEN-USASP2013016403

PATIENT
  Sex: Female

DRUGS (5)
  1. PROLIA [Suspect]
     Indication: OSTEOPOROSIS POSTMENOPAUSAL
     Dosage: 60 MG, Q6MO
     Dates: start: 201301
  2. VESICARE [Concomitant]
     Dosage: UNK
  3. DIURETICS [Concomitant]
     Dosage: UNK
  4. PLAVIX [Concomitant]
     Dosage: UNK
  5. VICODIN [Concomitant]
     Dosage: UNK

REACTIONS (3)
  - Pruritus [Unknown]
  - Local swelling [Unknown]
  - Arthralgia [Unknown]
